FAERS Safety Report 17214812 (Version 1)
Quarter: 2019Q4

REPORT INFORMATION
  Report Type: Spontaneous
  Country: US (occurrence: US)
  Receive Date: 20191230
  Receipt Date: 20191230
  Transmission Date: 20200122
  Serious: No
  Sender: FDA-Public Use
  Company Number: US-MYLANLABS-2019M1126083

PATIENT
  Age: 22 Year
  Sex: Male
  Weight: 80 kg

DRUGS (4)
  1. VITAMIN B12 [Concomitant]
     Active Substance: CYANOCOBALAMIN
  2. GLATIRAMER ACETATE INJECTION [Suspect]
     Active Substance: GLATIRAMER ACETATE
     Indication: MULTIPLE SCLEROSIS
     Dosage: 40 MILLIGRAM PER MILLILITRE, 3XW
  3. VITAMIN D                          /07503901/ [Concomitant]
     Active Substance: VITAMIN D NOS
  4. PANTOPRAZOLE [Concomitant]
     Active Substance: PANTOPRAZOLE

REACTIONS (1)
  - Injection site inflammation [Not Recovered/Not Resolved]

NARRATIVE: CASE EVENT DATE: 20191216
